FAERS Safety Report 18279161 (Version 1)
Quarter: 2020Q3

REPORT INFORMATION
  Report Type: Spontaneous
  Country: FR (occurrence: FR)
  Receive Date: 20200917
  Receipt Date: 20200917
  Transmission Date: 20201103
  Serious: Yes (Death)
  Sender: FDA-Public Use
  Company Number: FR-009507513-2009FRA004510

PATIENT
  Age: 59 Year
  Sex: Male

DRUGS (8)
  1. EMEND [Concomitant]
     Active Substance: APREPITANT
     Route: 048
     Dates: start: 20191230
  2. ZOPHREN (ONDANSETRON) [Concomitant]
     Active Substance: ONDANSETRON
     Route: 048
     Dates: start: 20191230
  3. KEYTRUDA [Suspect]
     Active Substance: PEMBROLIZUMAB
     Indication: LUNG CARCINOMA CELL TYPE UNSPECIFIED STAGE IV
     Route: 042
     Dates: start: 20191203, end: 20200203
  4. OXYCONTIN [Concomitant]
     Active Substance: OXYCODONE HYDROCHLORIDE
     Route: 048
     Dates: start: 20191203
  5. PEMETREXED DISODIUM [Concomitant]
     Active Substance: PEMETREXED DISODIUM
     Route: 042
     Dates: start: 20191203, end: 20200203
  6. ARANESP [Concomitant]
     Active Substance: DARBEPOETIN ALFA
     Dosage: UNK MICROGRAM
     Route: 042
     Dates: start: 20191230
  7. LANSOPRAZOLE. [Concomitant]
     Active Substance: LANSOPRAZOLE
     Route: 048
     Dates: start: 20191203
  8. CARBOPLATIN. [Concomitant]
     Active Substance: CARBOPLATIN
     Dosage: UNK UNK, EVERY 4 WEEKS
     Route: 042
     Dates: start: 20191203, end: 20200203

REACTIONS (1)
  - Enteritis [Fatal]

NARRATIVE: CASE EVENT DATE: 20200211
